FAERS Safety Report 6832197-8 (Version None)
Quarter: 2010Q3

REPORT INFORMATION
  Report Type: 
  Country: None (occurrence: None)
  Receive Date: 20100712
  Receipt Date: 20100705
  Transmission Date: 20110219
  Serious: Yes (Other)
  Sender: FDA-Public Use
  Company Number: SE-ASTRAZENECA-2010SE31147

PATIENT
  Sex: Female

DRUGS (1)
  1. SYMBICORT FORTE TBH [Suspect]
     Dosage: UNKNOWN DOSE TWO TIMES A DAY
     Route: 055

REACTIONS (2)
  - ABORTION SPONTANEOUS [None]
  - DRUG EXPOSURE DURING PREGNANCY [None]
